FAERS Safety Report 22377066 (Version 1)
Quarter: 2023Q2

REPORT INFORMATION
  Report Type: Spontaneous
  Country: US (occurrence: US)
  Receive Date: 20230529
  Receipt Date: 20230529
  Transmission Date: 20230721
  Serious: Yes (Hospitalization, Other)
  Sender: FDA-Public Use
  Company Number: US-GLENMARK PHARMACEUTICALS-2023GMK082045

PATIENT

DRUGS (1)
  1. TOPIRAMATE [Suspect]
     Active Substance: TOPIRAMATE
     Indication: Product used for unknown indication
     Dosage: 36 GRAM, ONCE
     Route: 065

REACTIONS (5)
  - Myoclonus [Recovered/Resolved]
  - Intentional overdose [Unknown]
  - Depressed level of consciousness [Recovered/Resolved]
  - Unresponsive to stimuli [Unknown]
  - Acidosis hyperchloraemic [Unknown]
